FAERS Safety Report 6967787-5 (Version None)
Quarter: 2010Q3

REPORT INFORMATION
  Report Type: 
  Country: None (occurrence: None)
  Receive Date: 20100907
  Receipt Date: 20100827
  Transmission Date: 20110219
  Serious: Yes (Hospitalization)
  Sender: FDA-Public Use
  Company Number: FR-BAYER-201037798GPV

PATIENT
  Age: 64 Year
  Sex: Male

DRUGS (6)
  1. GLUCOR [Suspect]
     Indication: TYPE 2 DIABETES MELLITUS
     Dosage: TOTAL DAILY DOSE: 300 MG  UNIT DOSE: 100 MG
     Route: 048
     Dates: start: 20100101, end: 20100610
  2. XELEVIA [Suspect]
     Indication: PRODUCT USED FOR UNKNOWN INDICATION
     Dosage: TOTAL DAILY DOSE: 100 MG
     Route: 048
     Dates: start: 20100101, end: 20100605
  3. TAHOR [Suspect]
     Indication: PRODUCT USED FOR UNKNOWN INDICATION
     Dosage: TOTAL DAILY DOSE: 20 MG
     Route: 048
     Dates: start: 20090101, end: 20100605
  4. LOXEN LP [Concomitant]
     Dosage: SINCE 15 YEARS
  5. FORTZAAR [Concomitant]
     Dosage: 100/25 (HYDROCHLOROTHIAZIDE, LOSARTAN POTASSIUM) SINCE ONE YEAR
  6. DIAMICRON LP [Concomitant]
     Dosage: FOLLOWING GLYCOSYLATED HEMOGLOBIN OF 7,8 % AND WITHDRAWN FOR 15 DAYS
     Dates: start: 20100501

REACTIONS (1)
  - PANCREATITIS [None]
